FAERS Safety Report 12197708 (Version 1)
Quarter: 2016Q1

REPORT INFORMATION
  Report Type: Spontaneous
  Country: US (occurrence: None)
  Receive Date: 20160321
  Receipt Date: 20160321
  Transmission Date: 20160526
  Serious: Yes (Other)
  Sender: FDA-Public Use
  Company Number: None

PATIENT
  Age: 65 Year
  Sex: Female
  Weight: 90.27 kg

DRUGS (6)
  1. CYMBALTA [Suspect]
     Active Substance: DULOXETINE HYDROCHLORIDE
     Indication: NEURALGIA
     Dosage: 20MG X2 ONCE DAILY TAKEN BY MOUTH
     Route: 048
  2. METFORMIN [Concomitant]
     Active Substance: METFORMIN HYDROCHLORIDE
  3. AVAPRON [Concomitant]
  4. VIT B [Concomitant]
     Active Substance: VITAMIN B
  5. VITAMIN D [Concomitant]
     Active Substance: CHOLECALCIFEROL
  6. PROPANOL [Concomitant]
     Active Substance: PROPRANOLOL HYDROCHLORIDE

REACTIONS (3)
  - Fall [None]
  - Dizziness [None]
  - Wrist fracture [None]

NARRATIVE: CASE EVENT DATE: 20160307
